FAERS Safety Report 7790236-4 (Version None)
Quarter: 2011Q3

REPORT INFORMATION
  Report Type: 
  Country: None (occurrence: None)
  Receive Date: 20110930
  Receipt Date: 20110922
  Transmission Date: 20111222
  Serious: Yes (Other)
  Sender: FDA-Public Use
  Company Number: US-TYCO HEALTHCARE/MALLINCKRODT-T201101906

PATIENT
  Sex: Male

DRUGS (4)
  1. OPTIMARK [Suspect]
     Indication: NUCLEAR MAGNETIC RESONANCE IMAGING
     Dosage: UNK
     Dates: start: 20011101
  2. OPTIMARK [Suspect]
     Dosage: UNK
     Dates: start: 20051215
  3. OMNISCAN [Suspect]
     Dosage: UNK
     Dates: start: 20040923
  4. OMNISCAN [Suspect]
     Indication: NUCLEAR MAGNETIC RESONANCE IMAGING
     Dosage: UNK
     Dates: start: 19980601

REACTIONS (1)
  - NEPHROGENIC SYSTEMIC FIBROSIS [None]
